FAERS Safety Report 23714075 (Version 1)
Quarter: 2024Q2

REPORT INFORMATION
  Report Type: Spontaneous
  Country: AU (occurrence: None)
  Receive Date: 20240405
  Receipt Date: 20240405
  Transmission Date: 20240716
  Serious: Yes (Death, Hospitalization)
  Sender: FDA-Public Use
  Company Number: 2024A079018

PATIENT
  Age: 65 Year
  Sex: Male

DRUGS (11)
  1. DAPAGLIFLOZIN [Suspect]
     Active Substance: DAPAGLIFLOZIN
     Route: 048
  2. METFORMIN HYDROCHLORIDE [Suspect]
     Active Substance: METFORMIN HYDROCHLORIDE
     Indication: Diabetes mellitus
     Dates: end: 20240229
  3. BACTRIM [Concomitant]
     Active Substance: SULFAMETHOXAZOLE\TRIMETHOPRIM
  4. HUMALOG [Concomitant]
     Active Substance: INSULIN LISPRO
  5. OPTISULIN [Concomitant]
  6. BEVACIZUMAB [Concomitant]
     Active Substance: BEVACIZUMAB
  7. ATEZOLIZUMAB [Concomitant]
     Active Substance: ATEZOLIZUMAB
  8. CARVEDILOL [Concomitant]
     Active Substance: CARVEDILOL
  9. PRAZOSIN HYDROCHLORIDE [Concomitant]
     Active Substance: PRAZOSIN HYDROCHLORIDE
  10. SPIRONOLACTONE [Concomitant]
     Active Substance: SPIRONOLACTONE
  11. WARFARIN SODIUM [Concomitant]
     Active Substance: WARFARIN SODIUM

REACTIONS (5)
  - Acute kidney injury [Fatal]
  - Fournier^s gangrene [Fatal]
  - Hepatic cirrhosis [Fatal]
  - Hypervolaemia [Fatal]
  - Scrotal cellulitis [Fatal]

NARRATIVE: CASE EVENT DATE: 20240228
